FAERS Safety Report 18137452 (Version 1)
Quarter: 2020Q3

REPORT INFORMATION
  Report Type: Spontaneous
  Country: DE (occurrence: DE)
  Receive Date: 20200811
  Receipt Date: 20200811
  Transmission Date: 20201103
  Serious: Yes (Hospitalization, Disabling, Other)
  Sender: FDA-Public Use
  Company Number: DE-PURDUE-USA-2020-0161159

PATIENT
  Age: 32 Year
  Sex: Female

DRUGS (7)
  1. DIMETHYL SULFOXIDE. [Concomitant]
     Active Substance: DIMETHYL SULFOXIDE
     Indication: PRODUCT USED FOR UNKNOWN INDICATION
     Route: 065
     Dates: start: 201906
  2. VERSATIS [Concomitant]
     Active Substance: LIDOCAINE
     Indication: PRODUCT USED FOR UNKNOWN INDICATION
     Dosage: UNK (TWO VERSATIS PATCHES)
     Route: 065
     Dates: start: 201906
  3. HYDROMORPHONE HCL (SIMILAR TO 19?892) [Suspect]
     Active Substance: HYDROMORPHONE HYDROCHLORIDE
     Indication: COMPLEX REGIONAL PAIN SYNDROME
     Dosage: 64 MG, DAILY (64MG/D)
     Route: 065
     Dates: start: 201906
  4. AMITRIPTYLINE [Suspect]
     Active Substance: AMITRIPTYLINE
     Indication: COMPLEX REGIONAL PAIN SYNDROME
     Dosage: 70 MG, PM (AT NIGTH)
     Route: 065
     Dates: start: 201906
  5. PREGABALIN. [Suspect]
     Active Substance: PREGABALIN
     Indication: COMPLEX REGIONAL PAIN SYNDROME
     Dosage: 1200 MG, DAILY (1200 MG/DIE)
     Route: 065
     Dates: start: 201906
  6. DULOXETINE. [Suspect]
     Active Substance: DULOXETINE
     Indication: COMPLEX REGIONAL PAIN SYNDROME
     Dosage: 60 MG, UNK
     Route: 065
     Dates: start: 201906
  7. ACETYLCYSTEINE. [Concomitant]
     Active Substance: ACETYLCYSTEINE
     Indication: PRODUCT USED FOR UNKNOWN INDICATION
     Dosage: 1200 MG, DAILY (1200 MG/D)
     Route: 065
     Dates: start: 201906

REACTIONS (3)
  - Immobile [Unknown]
  - Pain [Recovered/Resolved]
  - Drug ineffective [Unknown]
